FAERS Safety Report 16370442 (Version 1)
Quarter: 2019Q2

REPORT INFORMATION
  Report Type: Spontaneous
  Country: US (occurrence: US)
  Receive Date: 20190530
  Receipt Date: 20190530
  Transmission Date: 20190711
  Serious: No
  Sender: FDA-Public Use
  Company Number: US-ALNYLAM PHARMACEUTICALS, INC.-ALN-2019-000318

PATIENT
  Sex: Male

DRUGS (4)
  1. DEXAMETHASONE. [Concomitant]
     Active Substance: DEXAMETHASONE
     Indication: PROPHYLAXIS
  2. PARACETAMOL [Concomitant]
     Active Substance: ACETAMINOPHEN
     Indication: PROPHYLAXIS
  3. RANITIDINE. [Concomitant]
     Active Substance: RANITIDINE
     Indication: PROPHYLAXIS
  4. ONPATTRO [Suspect]
     Active Substance: PATISIRAN SODIUM
     Indication: HEREDITARY NEUROPATHIC AMYLOIDOSIS
     Dosage: UNK, Q3W
     Route: 042
     Dates: start: 20190502

REACTIONS (5)
  - Product administration error [Unknown]
  - Headache [Recovered/Resolved]
  - Feeling abnormal [Recovered/Resolved]
  - Joint swelling [Recovered/Resolved]
  - Micturition disorder [Recovered/Resolved]

NARRATIVE: CASE EVENT DATE: 20190502
